FAERS Safety Report 21711648 (Version 2)
Quarter: 2023Q1

REPORT INFORMATION
  Report Type: Spontaneous
  Country: US (occurrence: US)
  Receive Date: 20221212
  Receipt Date: 20230121
  Transmission Date: 20230417
  Serious: Yes (Other)
  Sender: FDA-Public Use
  Company Number: US-AUROBINDO-AUR-APL-2022-052282

PATIENT
  Age: 72 Year
  Sex: Female

DRUGS (4)
  1. MOXIFLOXACIN [Suspect]
     Active Substance: MOXIFLOXACIN
     Indication: Glaucoma surgery
     Dosage: UNK
  2. MITOMYCIN C [Suspect]
     Active Substance: MITOMYCIN
     Indication: Glaucoma surgery
     Dosage: 0.2 MILLILITER
     Route: 057
  3. PAPAIN [Concomitant]
     Active Substance: PAPAIN
     Indication: Product used for unknown indication
     Dosage: UNK
     Route: 065
  4. MAXITROL [Concomitant]
     Active Substance: DEXAMETHASONE\NEOMYCIN SULFATE\POLYMYXIN B SULFATE
     Indication: Postoperative care
     Dosage: UNK
     Route: 065

REACTIONS (3)
  - Toxicity to various agents [Unknown]
  - Photophobia [Not Recovered/Not Resolved]
  - Iris transillumination defect [Unknown]
